FAERS Safety Report 15451932 (Version 2)
Quarter: 2018Q4

REPORT INFORMATION
  Report Type: Spontaneous
  Country: BE (occurrence: BE)
  Receive Date: 20181001
  Receipt Date: 20181015
  Transmission Date: 20190204
  Serious: Yes (Other)
  Sender: FDA-Public Use
  Company Number: BE-JUBILANT CADISTA PHARMACEUTICALS-2018JUB00389

PATIENT
  Age: 38 Year
  Sex: Female

DRUGS (3)
  1. ALCOHOL. [Concomitant]
     Active Substance: ALCOHOL
     Dosage: TWO GLASSES PER DAY
     Route: 048
  2. ESCITALOPRAM [Concomitant]
     Active Substance: ESCITALOPRAM OXALATE
     Dosage: 10 MG, 1X/DAY
     Route: 065
  3. QUETIAPINE. [Suspect]
     Active Substance: QUETIAPINE
     Indication: SCHIZOPHRENIA
     Dosage: 200 MG, 2X/DAY
     Route: 065

REACTIONS (4)
  - Thrombotic thrombocytopenic purpura [Recovered/Resolved]
  - Metabolic acidosis [Recovered/Resolved]
  - Hypertriglyceridaemia [Recovered/Resolved]
  - Pancreatitis [Recovered/Resolved]
